FAERS Safety Report 23150912 (Version 1)
Quarter: 2023Q4

REPORT INFORMATION
  Report Type: Spontaneous
  Country: US (occurrence: US)
  Receive Date: 20231106
  Receipt Date: 20231106
  Transmission Date: 20240110
  Serious: No
  Sender: FDA-Public Use
  Company Number: US-009507513-2310USA003379

PATIENT
  Sex: Female

DRUGS (3)
  1. JANUMET [Suspect]
     Active Substance: METFORMIN HYDROCHLORIDE\SITAGLIPTIN PHOSPHATE
     Route: 048
  2. GLIPIZIDE [Suspect]
     Active Substance: GLIPIZIDE
     Dosage: 1 DOSAGE FORM
     Route: 048
  3. METFORMIN [Suspect]
     Active Substance: METFORMIN HYDROCHLORIDE
     Dosage: 2 DOSAGE FORM
     Route: 048

REACTIONS (11)
  - Blood glucose increased [Unknown]
  - Dry mouth [Unknown]
  - Hyperhidrosis [Unknown]
  - Hypoaesthesia [Unknown]
  - Paraesthesia [Unknown]
  - Fear of injection [Unknown]
  - Refusal of treatment by patient [Unknown]
  - Inability to afford medication [Unknown]
  - Product use issue [Unknown]
  - Product dose omission issue [Unknown]
  - Insurance issue [Unknown]
